FAERS Safety Report 14336695 (Version 1)
Quarter: 2017Q4

REPORT INFORMATION
  Report Type: Spontaneous
  Country: FR (occurrence: FR)
  Receive Date: 20171229
  Receipt Date: 20171229
  Transmission Date: 20180321
  Serious: Yes (Hospitalization, Disabling)
  Sender: FDA-Public Use
  Company Number: FR-009507513-1712FRA012797

PATIENT
  Age: 65 Year
  Sex: Male
  Weight: 67 kg

DRUGS (10)
  1. PREVISCAN (FLUINDIONE) [Concomitant]
     Active Substance: FLUINDIONE
  2. LOPERAMIDE [Concomitant]
     Active Substance: LOPERAMIDE
  3. KEYTRUDA [Suspect]
     Active Substance: PEMBROLIZUMAB
     Indication: METASTATIC MALIGNANT MELANOMA
     Dosage: 148 MG
     Route: 042
     Dates: start: 20170524, end: 20170907
  4. RANITIDINE. [Concomitant]
     Active Substance: RANITIDINE
  5. YERVOY [Suspect]
     Active Substance: IPILIMUMAB
     Indication: METASTATIC MALIGNANT MELANOMA
     Dosage: 225 MG
     Route: 042
     Dates: start: 20170927, end: 20171018
  6. JANUVIA [Concomitant]
     Active Substance: SITAGLIPTIN PHOSPHATE
  7. ACETAMINOPHEN. [Concomitant]
     Active Substance: ACETAMINOPHEN
  8. OXYCODONE [Concomitant]
     Active Substance: OXYCODONE
  9. SMECTITE [Concomitant]
     Active Substance: MONTMORILLONITE
  10. GLICLAZIDE [Concomitant]
     Active Substance: GLICLAZIDE

REACTIONS (2)
  - Diarrhoea [Recovering/Resolving]
  - Colitis ulcerative [Recovering/Resolving]

NARRATIVE: CASE EVENT DATE: 20171030
